FAERS Safety Report 10477832 (Version 1)
Quarter: 2014Q3

REPORT INFORMATION
  Report Type: Spontaneous
  Country: US (occurrence: None)
  Receive Date: 20140925
  Receipt Date: 20140925
  Transmission Date: 20150326
  Serious: Yes (Other)
  Sender: FDA-Public Use
  Company Number: None

PATIENT
  Age: 29 Year
  Sex: Male

DRUGS (1)
  1. HALOPERIDOL DECANOATE. [Suspect]
     Active Substance: HALOPERIDOL DECANOATE
     Indication: SCHIZOPHRENIA
     Dosage: 150MG, EVERY 4 WEEKS, IM
     Route: 030
     Dates: start: 20120319, end: 20140731

REACTIONS (2)
  - Drug level below therapeutic [None]
  - Product measured potency issue [None]

NARRATIVE: CASE EVENT DATE: 20140703
